FAERS Safety Report 20915019 (Version 3)
Quarter: 2022Q2

REPORT INFORMATION
  Report Type: Spontaneous
  Country: US (occurrence: US)
  Receive Date: 20220604
  Receipt Date: 20220616
  Transmission Date: 20220720
  Serious: No
  Sender: FDA-Public Use
  Company Number: US-SA-SAC20220526000766

PATIENT
  Age: 25 Year
  Sex: Male

DRUGS (6)
  1. DUPIXENT [Suspect]
     Active Substance: DUPILUMAB
     Indication: Dermatitis atopic
     Dosage: 600 MG, 1X
     Route: 058
     Dates: start: 20220517, end: 20220517
  2. DUPIXENT [Suspect]
     Active Substance: DUPILUMAB
     Dosage: 300 MG, QOW
     Route: 058
     Dates: start: 202205
  3. FLONASE ALLERGY RELIEF [Concomitant]
     Active Substance: FLUTICASONE PROPIONATE
     Dosage: UNK
  4. FLUCELVAX QUAD [Concomitant]
     Dosage: UNK
  5. CLARITHROMYCIN [Concomitant]
     Active Substance: CLARITHROMYCIN
  6. JANSSEN COVID-19 VACCINE [Concomitant]
     Active Substance: AD26.COV2.S
     Indication: Immunisation

REACTIONS (6)
  - Injection site pain [Unknown]
  - Product preparation error [Unknown]
  - Skin haemorrhage [Unknown]
  - Scratch [Unknown]
  - Dermatitis atopic [Unknown]
  - Accidental exposure to product [Unknown]

NARRATIVE: CASE EVENT DATE: 20220501
